FAERS Safety Report 11412293 (Version 1)
Quarter: 2015Q3

REPORT INFORMATION
  Report Type: Spontaneous
  Country: US (occurrence: US)
  Receive Date: 20150824
  Receipt Date: 20150824
  Transmission Date: 20151125
  Serious: No
  Sender: FDA-Public Use
  Company Number: US-JNJFOC-20150721428

PATIENT
  Age: 41 Year
  Sex: Male
  Weight: 102.06 kg

DRUGS (2)
  1. MENS ROGAINE UNSCENTED FORMULA [Suspect]
     Active Substance: MINOXIDIL
     Route: 061
  2. MENS ROGAINE UNSCENTED FORMULA [Suspect]
     Active Substance: MINOXIDIL
     Indication: ALOPECIA
     Dosage: POSSIBLY A LITTLE MORE THAN 1/2 CAP
     Route: 061

REACTIONS (6)
  - Dry skin [Recovering/Resolving]
  - Inappropriate schedule of drug administration [Recovering/Resolving]
  - Application site scab [Recovering/Resolving]
  - Pruritus [Recovering/Resolving]
  - Application site irritation [Recovering/Resolving]
  - Scar pain [Recovering/Resolving]
